FAERS Safety Report 19311822 (Version 1)
Quarter: 2021Q2

REPORT INFORMATION
  Report Type: Spontaneous
  Country: US (occurrence: US)
  Receive Date: 20210527
  Receipt Date: 20210527
  Transmission Date: 20210717
  Serious: No
  Sender: FDA-Public Use
  Company Number: US-AMGEN-USASP2021079773

PATIENT
  Age: 53 Year
  Sex: Male

DRUGS (4)
  1. MVASI [Suspect]
     Active Substance: BEVACIZUMAB-AWWB
     Indication: NON-SMALL CELL LUNG CANCER
     Dosage: 1300 MILLIGRAM, Q3WK
     Route: 042
     Dates: start: 20210303
  2. MVASI [Suspect]
     Active Substance: BEVACIZUMAB-AWWB
     Dosage: UNK
     Route: 065
  3. CARBOPLATIN. [Concomitant]
     Active Substance: CARBOPLATIN
  4. PEMETREXED. [Concomitant]
     Active Substance: PEMETREXED

REACTIONS (2)
  - Nausea [Not Recovered/Not Resolved]
  - Vomiting [Not Recovered/Not Resolved]
